FAERS Safety Report 5688214-4 (Version None)
Quarter: 2008Q1

REPORT INFORMATION
  Report Type: 
  Country: None (occurrence: None)
  Receive Date: 20080327
  Receipt Date: 20080312
  Transmission Date: 20080703
  Serious: Yes (Congenital Anomaly)
  Sender: FDA-Public Use
  Company Number: WAES 0803USA02598

PATIENT

DRUGS (1)
  1. INDOCIN [Suspect]
     Indication: POLYHYDRAMNIOS
     Dosage: 50 MG/TID PO
     Route: 048
     Dates: start: 20070717, end: 20070720

REACTIONS (10)
  - APGAR SCORE LOW [None]
  - CAESAREAN SECTION [None]
  - CONDITION AGGRAVATED [None]
  - CONGENITAL MUSCULOSKELETAL ANOMALY [None]
  - DRUG EXPOSURE DURING PREGNANCY [None]
  - HYPOPNOEA [None]
  - HYPOTONIA NEONATAL [None]
  - MUSCULAR DYSTROPHY [None]
  - NEONATAL DISORDER [None]
  - POLYHYDRAMNIOS [None]
